FAERS Safety Report 7887812-7 (Version None)
Quarter: 2011Q4

REPORT INFORMATION
  Report Type: 
  Country: None (occurrence: None)
  Receive Date: 20111103
  Receipt Date: 20111028
  Transmission Date: 20120403
  Serious: Yes (Hospitalization)
  Sender: FDA-Public Use
  Company Number: US-VERTEX PHARMACEUTICALS INC.-AE-2011-002771

PATIENT
  Sex: Male

DRUGS (3)
  1. PEGASYS [Concomitant]
     Indication: HEPATITIS C
     Dates: start: 20110922
  2. COPEGUS [Concomitant]
     Indication: HEPATITIS C
     Dates: start: 20110922
  3. INCIVEK [Suspect]
     Indication: HEPATITIS C
     Dates: start: 20110922

REACTIONS (2)
  - DIARRHOEA [None]
  - DEHYDRATION [None]
